FAERS Safety Report 4484292-9 (Version None)
Quarter: 2004Q3

REPORT INFORMATION
  Report Type: 
  Country: None (occurrence: None)
  Receive Date: 20040921
  Receipt Date: 20040121
  Transmission Date: 20050211
  Serious: Yes (Hospitalization)
  Sender: FDA-Public Use
  Company Number: 163-20785-04010606(0)

PATIENT
  Age: 72 Year
  Sex: Female
  Weight: 190 kg

DRUGS (11)
  1. THALOMID [Suspect]
     Indication: PANCREATIC CARCINOMA METASTATIC
     Dosage: SEE IMAGE
     Route: 048
     Dates: start: 20031229, end: 20040101
  2. THALOMID [Suspect]
     Indication: PANCREATIC CARCINOMA METASTATIC
     Dosage: SEE IMAGE
     Route: 048
     Dates: start: 20040105
  3. GEMZAR [Suspect]
     Indication: PANCREATIC CARCINOMA METASTATIC
     Dosage: 100 MG/M2 ,CYCLE 1, ORAL
     Route: 048
     Dates: start: 20040105
  4. LACTULOSE [Concomitant]
  5. SPIRONOLACTONE [Concomitant]
  6. LEVOXYL [Concomitant]
  7. VERAPAMIL [Concomitant]
  8. POTASSIUM CHLORIDE [Concomitant]
  9. METFORMIN HCL [Concomitant]
  10. LASIX (FUROSEMDIE) [Concomitant]
  11. DURAGESIC PATCH (FENTANYL) (POULTICE OR PATCH) [Concomitant]

REACTIONS (18)
  - ABDOMINAL DISTENSION [None]
  - ANOREXIA [None]
  - ATELECTASIS [None]
  - BLOOD PRESSURE INCREASED [None]
  - CHILLS [None]
  - CONSTIPATION [None]
  - DEHYDRATION [None]
  - DIZZINESS [None]
  - DYSPNOEA [None]
  - FATIGUE [None]
  - FEELING ABNORMAL [None]
  - MALAISE [None]
  - NAUSEA [None]
  - PALPITATIONS [None]
  - PLEURAL EFFUSION [None]
  - PORTAL VEIN THROMBOSIS [None]
  - VOMITING [None]
  - WEIGHT DECREASED [None]
